FAERS Safety Report 24540206 (Version 1)
Quarter: 2024Q4

REPORT INFORMATION
  Report Type: Spontaneous
  Country: US (occurrence: None)
  Receive Date: 20241023
  Receipt Date: 20241023
  Transmission Date: 20250114
  Serious: Yes (Hospitalization)
  Sender: Public
  Company Number: None

PATIENT
  Age: 73 Year
  Sex: Male
  Weight: 61.23 kg

DRUGS (1)
  1. ACETAZOLAMIDE [Suspect]
     Active Substance: ACETAZOLAMIDE
     Indication: CSF pressure increased
     Dates: start: 202301, end: 202310

REACTIONS (5)
  - Weight decreased [None]
  - Urinary tract infection [None]
  - Haematological infection [None]
  - Decreased appetite [None]
  - Asthenia [None]
